FAERS Safety Report 23794566 (Version 1)
Quarter: 2024Q2

REPORT INFORMATION
  Report Type: Spontaneous
  Country: IE (occurrence: IE)
  Receive Date: 20240429
  Receipt Date: 20240429
  Transmission Date: 20240716
  Serious: Yes (Other)
  Sender: FDA-Public Use
  Company Number: None

PATIENT
  Age: 42 Year
  Sex: Female

DRUGS (7)
  1. ESTRADIOL [Interacting]
     Active Substance: ESTRADIOL
     Indication: Assisted fertilisation
     Dosage: 2 MILLIGRAM (DAY 1-5 TREATMENT CYCLE: 1 TABLET; DAY 6-9: 2 TABLETS, DAY 10 ONWARDS: 3 TABLETS  )
     Route: 048
     Dates: start: 20240223, end: 20240330
  2. ESTRADIOL [Interacting]
     Active Substance: ESTRADIOL
     Dosage: SOME ACROSS DIFFERENT TREATMENT CYC
     Route: 065
  3. LEVOTHYROXINE [Interacting]
     Active Substance: LEVOTHYROXINE\LEVOTHYROXINE SODIUM
     Indication: Hypothyroidism
     Dosage: 100 MILLIGRAM, QD
     Route: 065
  4. VITAMIN D [Concomitant]
     Active Substance: VITAMIN D NOS
     Dosage: 1 TABLET DAILY, 1000 IU (25?G)
     Route: 065
  5. SUPREFACT [Concomitant]
     Active Substance: BUSERELIN
     Dosage: 0.5 ML SUBCUTANEOUS INJECTION ONCE A DAY
     Route: 058
     Dates: start: 20240207, end: 20240309
  6. FOLIC ACID [Concomitant]
     Active Substance: FOLIC ACID
     Dosage: 1 DOSAGE FORM, QD (1 TABLET PER DAY, 400 ?G  )
     Route: 065
  7. PROGESTERONE [Concomitant]
     Active Substance: PROGESTERONE
     Dosage: 400 MILLIGRAM, BID
     Route: 065
     Dates: start: 20240309, end: 20240330

REACTIONS (4)
  - Blood thyroid stimulating hormone increased [Unknown]
  - Treatment failure [Unknown]
  - Drug interaction [Unknown]
  - Product label issue [Unknown]

NARRATIVE: CASE EVENT DATE: 20240314
